FAERS Safety Report 8580397-1 (Version None)
Quarter: 2012Q2

REPORT INFORMATION
  Report Type: 
  Country: None (occurrence: None)
  Receive Date: 20120423
  Receipt Date: 20091216
  Transmission Date: 20120825
  Serious: Yes (Other)
  Sender: FDA-Public Use
  Company Number: PHHY2009US56868

PATIENT
  Age: 39 Year
  Sex: Male

DRUGS (1)
  1. EXJADE [Suspect]
     Indication: HODGKIN'S DISEASE
     Dosage: 1500 MG, DAILY, ORAL
     Route: 048

REACTIONS (1)
  - RENAL DISORDER [None]
